FAERS Safety Report 7218316-2 (Version None)
Quarter: 2011Q1

REPORT INFORMATION
  Report Type: 
  Country: None (occurrence: None)
  Receive Date: 20110110
  Receipt Date: 20101231
  Transmission Date: 20110831
  Serious: Yes (Hospitalization)
  Sender: FDA-Public Use
  Company Number: TH-EISAI INC.-E7389-01064-CLI-TH

PATIENT
  Sex: Female
  Weight: 35 kg

DRUGS (3)
  1. E7389 (BOLD) [Suspect]
     Route: 041
     Dates: start: 20101216
  2. E7389 (BOLD) [Suspect]
     Indication: NON-SMALL CELL LUNG CANCER
     Route: 041
     Dates: start: 20101022
  3. ERLOTINIB [Concomitant]
     Indication: NON-SMALL CELL LUNG CANCER
     Route: 048
     Dates: start: 20101023

REACTIONS (2)
  - HAEMATOMA INFECTION [None]
  - FEBRILE NEUTROPENIA [None]
